FAERS Safety Report 21896716 (Version 1)
Quarter: 2023Q1

REPORT INFORMATION
  Report Type: Spontaneous
  Country: US (occurrence: US)
  Receive Date: 20230123
  Receipt Date: 20230123
  Transmission Date: 20230417
  Serious: Yes (Other)
  Sender: FDA-Public Use
  Company Number: US-002147023-NVSC2023US010653

PATIENT
  Age: 86 Year
  Sex: Female

DRUGS (4)
  1. MOXIFLOXACIN [Suspect]
     Active Substance: MOXIFLOXACIN
     Indication: Keratitis bacterial
     Dosage: 0.5 %, QH
     Route: 061
  2. TOBRAMYCIN [Suspect]
     Active Substance: TOBRAMYCIN
     Indication: Keratitis bacterial
     Dosage: 14 MILLIGRAM PER MILLILITRE, UNKNOWN
     Route: 061
  3. VANCOMYCIN [Suspect]
     Active Substance: VANCOMYCIN
     Indication: Keratitis bacterial
     Dosage: 25 MILLIGRAM PER MILLILITRE, QH (HOURLY FORTIFIED)
     Route: 061
  4. VORICONAZOLE [Suspect]
     Active Substance: VORICONAZOLE
     Indication: Keratitis bacterial
     Dosage: 1 %, UNKNOWN
     Route: 061

REACTIONS (4)
  - Keratitis bacterial [Unknown]
  - Condition aggravated [Unknown]
  - Drug ineffective [Unknown]
  - Product use in unapproved indication [Unknown]
